FAERS Safety Report 14038313 (Version 1)
Quarter: 2017Q4

REPORT INFORMATION
  Report Type: Report from Study
  Country: US (occurrence: US)
  Receive Date: 20171004
  Receipt Date: 20171004
  Transmission Date: 20180321
  Serious: Yes (Hospitalization, Other)
  Sender: FDA-Public Use
  Company Number: US-ROCHE-1998657

PATIENT
  Age: 34 Year
  Sex: Female
  Weight: 73.5 kg

DRUGS (22)
  1. PERJETA [Suspect]
     Active Substance: PERTUZUMAB
     Indication: BREAST CANCER
     Route: 065
     Dates: start: 20141122
  2. DOCETAXEL. [Concomitant]
     Active Substance: DOCETAXEL
  3. TAXOL [Concomitant]
     Active Substance: PACLITAXEL
  4. ACETAMINOPHEN. [Concomitant]
     Active Substance: ACETAMINOPHEN
     Indication: PAIN
     Dosage: PRN
     Route: 065
  5. TRASTUZUMAB EMTANSINE [Suspect]
     Active Substance: ADO-TRASTUZUMAB EMTANSINE
     Indication: BREAST CANCER
     Route: 065
  6. COREG [Concomitant]
     Active Substance: CARVEDILOL
     Route: 065
  7. LAPATINIB [Concomitant]
     Active Substance: LAPATINIB
     Route: 065
     Dates: start: 20161023
  8. LORAZEPAM. [Concomitant]
     Active Substance: LORAZEPAM
     Dosage: 2 HOURS BEFORE SCANS PRN
     Route: 065
  9. HERCEPTIN [Suspect]
     Active Substance: TRASTUZUMAB
     Indication: BREAST CANCER
     Route: 065
  10. PERJETA [Suspect]
     Active Substance: PERTUZUMAB
     Indication: METASTASES TO LIVER
  11. ZOFRAN [Concomitant]
     Active Substance: ONDANSETRON HYDROCHLORIDE
     Dosage: PRN
     Route: 065
  12. NAVELBINE [Concomitant]
     Active Substance: VINORELBINE TARTRATE
  13. XARELTO [Concomitant]
     Active Substance: RIVAROXABAN
     Route: 065
  14. RESTORIL [Concomitant]
     Active Substance: TEMAZEPAM
     Dosage: AT BEDTIME PRN
     Route: 065
  15. HYCODAN (UNITED STATES) [Concomitant]
     Dosage: PRN
     Route: 048
  16. MECLIZINE [Concomitant]
     Active Substance: MECLIZINE HYDROCHLORIDE
     Dosage: PRN
     Route: 065
  17. XANAX [Concomitant]
     Active Substance: ALPRAZOLAM
     Route: 065
  18. MIRALAX [Concomitant]
     Active Substance: POLYETHYLENE GLYCOL 3350
  19. ACETAMINOPHEN. [Concomitant]
     Active Substance: ACETAMINOPHEN
     Indication: HEADACHE
  20. CAPECITABINE. [Suspect]
     Active Substance: CAPECITABINE
     Indication: BREAST CANCER
     Route: 065
     Dates: start: 20161016
  21. LISINOPRIL. [Concomitant]
     Active Substance: LISINOPRIL
     Route: 065
  22. EMLA [Concomitant]
     Active Substance: LIDOCAINE\PRILOCAINE
     Dosage: 2.5%-2.5% CREAM PRN
     Route: 065

REACTIONS (19)
  - Pyrexia [Unknown]
  - Myocarditis [Unknown]
  - Oedema [Unknown]
  - Cardiomegaly [Unknown]
  - Haemangioma of bone [Unknown]
  - Thrombocytopenia [Unknown]
  - Anaemia [Unknown]
  - Chest pain [Unknown]
  - Spinal compression fracture [Unknown]
  - Pulmonary embolism [Recovered/Resolved]
  - Rectal haemorrhage [Unknown]
  - Hiatus hernia [Unknown]
  - Cardiac arrest [Recovered/Resolved]
  - Pleural effusion [Unknown]
  - Brachiocephalic vein thrombosis [Unknown]
  - Abdominal pain [Unknown]
  - Hypothermia [Unknown]
  - Fatigue [Unknown]
  - Neutropenia [Unknown]

NARRATIVE: CASE EVENT DATE: 20150518
